FAERS Safety Report 7418764-1 (Version None)
Quarter: 2011Q2

REPORT INFORMATION
  Report Type: 
  Country: None (occurrence: None)
  Receive Date: 20110415
  Receipt Date: 20110411
  Transmission Date: 20111010
  Serious: Yes (Other)
  Sender: FDA-Public Use
  Company Number: US-PFIZER INC-2011043287

PATIENT
  Sex: Female

DRUGS (4)
  1. PRISTIQ [Concomitant]
     Dosage: UNK
     Dates: start: 20080527
  2. GEODON [Suspect]
     Indication: PSYCHOTIC DISORDER
     Dosage: 80 MG, UNK
     Route: 048
     Dates: start: 20080527, end: 20100701
  3. GEODON [Suspect]
     Indication: SCHIZOPHRENIA
     Dosage: 160 MG, 1X/DAY
     Route: 048
     Dates: end: 20100701
  4. GEODON [Suspect]
     Dosage: 20 MG, 1X/DAY AT BEDTIME
     Route: 048

REACTIONS (1)
  - TARDIVE DYSKINESIA [None]
